FAERS Safety Report 25890403 (Version 1)
Quarter: 2025Q4

REPORT INFORMATION
  Report Type: Spontaneous
  Country: EU (occurrence: EU)
  Receive Date: 20251007
  Receipt Date: 20251007
  Transmission Date: 20260118
  Serious: Yes (Hospitalization)
  Sender: NOVO NORDISK
  Company Number: EU-DCGMA-25205783

PATIENT
  Age: 64 Year
  Sex: Male
  Weight: 83 kg

DRUGS (2)
  1. OZEMPIC [Suspect]
     Active Substance: SEMAGLUTIDE
     Dosage: 0.5
     Route: 058
     Dates: start: 20250818
  2. OZEMPIC [Suspect]
     Active Substance: SEMAGLUTIDE
     Indication: Weight control
     Dosage: 0.25
     Route: 058
     Dates: start: 20250714

REACTIONS (6)
  - Hypotension [Recovering/Resolving]
  - Acute kidney injury [Unknown]
  - Dehydration [Recovering/Resolving]
  - Nausea [Recovering/Resolving]
  - Vomiting [Recovering/Resolving]
  - Product use in unapproved indication [Unknown]

NARRATIVE: CASE EVENT DATE: 20250714
